FAERS Safety Report 16078812 (Version 1)
Quarter: 2019Q1

REPORT INFORMATION
  Report Type: Spontaneous
  Country: US (occurrence: US)
  Receive Date: 20190315
  Receipt Date: 20190315
  Transmission Date: 20190418
  Serious: No
  Sender: FDA-Public Use
  Company Number: US-PERRIGO-18US004472

PATIENT
  Sex: Female

DRUGS (1)
  1. SCOPOLAMINE [Suspect]
     Active Substance: SCOPOLAMINE
     Indication: MOTION SICKNESS
     Dosage: 1 MG, EVERY 3 DAYS
     Route: 062
     Dates: start: 201711

REACTIONS (4)
  - Contraindicated product administered [Unknown]
  - Visual acuity reduced [Unknown]
  - Photophobia [Unknown]
  - Balance disorder [Unknown]

NARRATIVE: CASE EVENT DATE: 201711
